FAERS Safety Report 24787601 (Version 1)
Quarter: 2024Q4

REPORT INFORMATION
  Report Type: Spontaneous
  Country: US (occurrence: US)
  Receive Date: 20241230
  Receipt Date: 20241230
  Transmission Date: 20250115
  Serious: No
  Sender: AUROBINDO
  Company Number: US-AUROBINDO-AUR-APL-2024-017368

PATIENT

DRUGS (1)
  1. DEXTROAMPHETAMINE SACCHARATE, AMPHETAMINE ASPARTATE, DEXTROAMPHETAMINE [Suspect]
     Active Substance: AMPHETAMINE ASPARTATE\AMPHETAMINE SULFATE\DEXTROAMPHETAMINE SACCHARATE\DEXTROAMPHETAMINE SULFATE
     Indication: Product used for unknown indication
     Dosage: UNK
     Route: 065

REACTIONS (15)
  - Fatigue [Unknown]
  - Agitation [Unknown]
  - Anger [Unknown]
  - Brain fog [Unknown]
  - Cognitive disorder [Unknown]
  - Crying [Unknown]
  - Depression [Unknown]
  - Emotional disorder [Unknown]
  - Fear [Unknown]
  - Feeling abnormal [Unknown]
  - Impaired driving ability [Unknown]
  - Irritability [Unknown]
  - Apathy [Unknown]
  - Product substitution issue [Unknown]
  - Therapy non-responder [Unknown]
